FAERS Safety Report 25282528 (Version 2)
Quarter: 2025Q2

REPORT INFORMATION
  Report Type: Spontaneous
  Country: US (occurrence: US)
  Receive Date: 20250508
  Receipt Date: 20250624
  Transmission Date: 20250716
  Serious: No
  Sender: CIPLA
  Company Number: US-CIPLA LTD.-2025US05206

PATIENT

DRUGS (5)
  1. LISINOPRIL [Suspect]
     Active Substance: LISINOPRIL
     Indication: Hypertension
     Route: 065
  2. LISINOPRIL [Suspect]
     Active Substance: LISINOPRIL
     Dosage: 10 MILLIGRAM, QD
     Route: 065
  3. LISINOPRIL [Suspect]
     Active Substance: LISINOPRIL
     Dosage: 10 MILLIGRAM, BID (MORNING AND EVENING)
     Route: 065
  4. LISINOPRIL [Suspect]
     Active Substance: LISINOPRIL
     Dosage: 20 MILLIGRAM, QD (MORNING)
     Route: 065
  5. LISINOPRIL [Suspect]
     Active Substance: LISINOPRIL
     Dosage: 20 MILLIGRAM, BID (MORNING AND EVENING)
     Route: 065

REACTIONS (4)
  - Drug ineffective [Unknown]
  - Incorrect dose administered [Unknown]
  - Product substitution issue [Unknown]
  - Product quality issue [Unknown]
